FAERS Safety Report 24722326 (Version 1)
Quarter: 2024Q4

REPORT INFORMATION
  Report Type: Spontaneous
  Country: AT (occurrence: AT)
  Receive Date: 20241211
  Receipt Date: 20241211
  Transmission Date: 20250115
  Serious: Yes (Other)
  Sender: MYLAN
  Company Number: AT-DSJP-DS-2024-110647-AT

PATIENT
  Age: 59 Year
  Sex: Female

DRUGS (3)
  1. AMIODARONE [Interacting]
     Active Substance: AMIODARONE
     Indication: Product used for unknown indication
     Dosage: 1.2 GRAM
     Route: 065
  2. EDOXABAN TOSYLATE [Suspect]
     Active Substance: EDOXABAN TOSYLATE
     Indication: Atrial fibrillation
     Dosage: UNK
     Route: 065
  3. METAMIZOLE [Interacting]
     Active Substance: METAMIZOLE
     Indication: Product used for unknown indication
     Dosage: 500 MILLIGRAM, Q8H (500 MG TABLETS, TID (2-2-2)
     Route: 065

REACTIONS (2)
  - Gingival bleeding [Unknown]
  - Drug interaction [Unknown]
